FAERS Safety Report 6851295-6 (Version None)
Quarter: 2010Q3

REPORT INFORMATION
  Report Type: 
  Country: None (occurrence: None)
  Receive Date: 20100717
  Receipt Date: 20080107
  Transmission Date: 20110219
  Serious: No
  Sender: FDA-Public Use
  Company Number: US-PFIZER INC-2008005380

PATIENT
  Age: 55 Year
  Sex: Female

DRUGS (3)
  1. CHANTIX [Suspect]
  2. ANASTROZOLE [Concomitant]
     Indication: BREAST CANCER
  3. CLONAZEPAM [Concomitant]
     Indication: ANXIETY

REACTIONS (1)
  - NIGHTMARE [None]
